FAERS Safety Report 11172976 (Version 1)
Quarter: 2015Q2

REPORT INFORMATION
  Report Type: Spontaneous
  Country: FR (occurrence: FR)
  Receive Date: 20150608
  Receipt Date: 20150608
  Transmission Date: 20150821
  Serious: Yes (Hospitalization, Other)
  Sender: FDA-Public Use
  Company Number: FR-ASTRAZENECA-2015SE55206

PATIENT
  Age: 829 Month
  Sex: Female

DRUGS (8)
  1. INEXIUM [Suspect]
     Active Substance: ESOMEPRAZOLE
     Route: 048
     Dates: start: 201501, end: 201503
  2. OMEPRAZOLE. [Suspect]
     Active Substance: OMEPRAZOLE
     Route: 048
     Dates: end: 201504
  3. APRANAX [Suspect]
     Active Substance: NAPROXEN
     Route: 065
     Dates: start: 201503, end: 201503
  4. METFORMINE [Suspect]
     Active Substance: METFORMIN HYDROCHLORIDE
     Indication: DIABETES MELLITUS
     Dosage: NON AZ DRUG, 500MG, THREE TIMES A DAY
     Route: 065
     Dates: end: 201504
  5. DOLIPRANE [Concomitant]
     Active Substance: ACETAMINOPHEN
     Indication: PAIN
  6. CEFIXIME. [Suspect]
     Active Substance: CEFIXIME
     Route: 065
     Dates: start: 20150417, end: 20150423
  7. ATARAX [Concomitant]
     Active Substance: HYDROXYZINE\HYDROXYZINE HYDROCHLORIDE
  8. TAHOR [Concomitant]
     Active Substance: ATORVASTATIN CALCIUM

REACTIONS (11)
  - Tubulointerstitial nephritis [Not Recovered/Not Resolved]
  - Night sweats [Unknown]
  - Dehydration [Unknown]
  - Decreased appetite [Unknown]
  - Anaemia [Unknown]
  - Nephritis allergic [Unknown]
  - Asthenia [Unknown]
  - Sarcoidosis [Unknown]
  - Kidney fibrosis [Unknown]
  - Acute kidney injury [Not Recovered/Not Resolved]
  - Pyrexia [Unknown]

NARRATIVE: CASE EVENT DATE: 201504
